FAERS Safety Report 17243254 (Version 1)
Quarter: 2019Q4

REPORT INFORMATION
  Report Type: Spontaneous
  Country: US (occurrence: US)
  Receive Date: 20191212
  Receipt Date: 20191212
  Transmission Date: 20200122
  Serious: No
  Sender: FDA-Public Use
  Company Number: None

PATIENT
  Sex: Female

DRUGS (1)
  1. CAPECITABINE 500MG NOVADOZ [Suspect]
     Active Substance: CAPECITABINE
     Route: 048
     Dates: start: 20190912, end: 20191024

REACTIONS (3)
  - Diarrhoea [None]
  - Adverse drug reaction [None]
  - Rash [None]
